FAERS Safety Report 9401527 (Version 2)
Quarter: 2013Q3

REPORT INFORMATION
  Report Type: Report from Study
  Country: US (occurrence: US)
  Receive Date: 20130716
  Receipt Date: 20130727
  Transmission Date: 20140515
  Serious: Yes (Death)
  Sender: FDA-Public Use
  Company Number: US-ROCHE-1247461

PATIENT
  Age: 43 Year
  Sex: Female

DRUGS (7)
  1. AVASTIN [Suspect]
     Indication: LUNG NEOPLASM MALIGNANT
     Dosage: AJUSTED ON 900 MG Q 2 WEEKS STARTING 26/FEB/2013
     Route: 042
     Dates: start: 20121204, end: 20130212
  2. AVASTIN [Suspect]
     Route: 042
     Dates: start: 20130312
  3. TAXOTERE [Concomitant]
     Indication: BREAST CANCER METASTATIC
     Dosage: FORM - IN 250 ML NS IV
     Route: 042
     Dates: start: 20121204
  4. TAXOTERE [Concomitant]
     Dosage: REDUCED TO 60 MG AFTER 26/DEC/2012
     Route: 042
  5. ALOXI [Concomitant]
     Dosage: IVPB
     Route: 065
  6. HEXADROL [Concomitant]
     Dosage: IN 50 ML NS IV
     Route: 042
  7. XGEVA [Concomitant]
     Route: 058

REACTIONS (22)
  - Death [Fatal]
  - Fatigue [Unknown]
  - Myalgia [Unknown]
  - Dyspnoea [Unknown]
  - Skin exfoliation [Unknown]
  - Erythema [Unknown]
  - Tenderness [Unknown]
  - Laboratory test abnormal [Unknown]
  - Anaemia [Unknown]
  - Feeling abnormal [Unknown]
  - Pain in extremity [Unknown]
  - Palmar erythema [Unknown]
  - Skin discolouration [Unknown]
  - Pain in extremity [Unknown]
  - Visual acuity reduced [Unknown]
  - Diplopia [Unknown]
  - VIth nerve paralysis [Unknown]
  - Radiation skin injury [Unknown]
  - Pain [Unknown]
  - Bone pain [Unknown]
  - Weight decreased [Unknown]
  - Skin disorder [Unknown]
